FAERS Safety Report 24454713 (Version 2)
Quarter: 2024Q4

REPORT INFORMATION
  Report Type: Spontaneous
  Country: FI (occurrence: FI)
  Receive Date: 20241017
  Receipt Date: 20241018
  Transmission Date: 20250115
  Serious: No
  Sender: ROCHE
  Company Number: FI-ROCHE-3472688

PATIENT
  Age: 12 Year
  Sex: Male

DRUGS (2)
  1. MABTHERA [Suspect]
     Active Substance: RITUXIMAB
     Indication: Product used for unknown indication
     Route: 042
     Dates: start: 20231205
  2. MABTHERA [Suspect]
     Active Substance: RITUXIMAB
     Dosage: 1 MG/ML 10 ML,
     Route: 042
     Dates: start: 20231205

REACTIONS (2)
  - Expired product administered [Unknown]
  - No adverse event [Unknown]

NARRATIVE: CASE EVENT DATE: 20231205
